FAERS Safety Report 20109187 (Version 1)
Quarter: 2021Q4

REPORT INFORMATION
  Report Type: Spontaneous
  Country: US (occurrence: US)
  Receive Date: 20211124
  Receipt Date: 20211124
  Transmission Date: 20220304
  Serious: Yes (Other)
  Sender: FDA-Public Use
  Company Number: US-PFIZER INC-202101584947

PATIENT
  Age: 49 Year
  Sex: Female

DRUGS (1)
  1. LEVOXYL [Suspect]
     Active Substance: LEVOTHYROXINE SODIUM
     Dosage: UNK

REACTIONS (15)
  - Multiple sclerosis relapse [Unknown]
  - Narcolepsy [Unknown]
  - Energy increased [Unknown]
  - Immune system disorder [Unknown]
  - Alopecia [Unknown]
  - Cognitive disorder [Unknown]
  - Urinary tract infection [Unknown]
  - Fatigue [Unknown]
  - Sensory disturbance [Unknown]
  - Hypoaesthesia [Unknown]
  - Vertigo [Unknown]
  - Anxiety [Unknown]
  - Blood cholesterol increased [Unknown]
  - Glucose tolerance impaired [Unknown]
  - Sleep disorder [Unknown]

NARRATIVE: CASE EVENT DATE: 20160101
